FAERS Safety Report 16279932 (Version 2)
Quarter: 2019Q2

REPORT INFORMATION
  Report Type: Spontaneous
  Country: US (occurrence: US)
  Receive Date: 20190507
  Receipt Date: 20190621
  Transmission Date: 20190711
  Serious: Yes (Death, Hospitalization)
  Sender: FDA-Public Use
  Company Number: US-ABBVIE-19K-163-2771942-00

PATIENT
  Sex: Female

DRUGS (1)
  1. HUMIRA [Suspect]
     Active Substance: ADALIMUMAB
     Indication: RHEUMATOID ARTHRITIS
     Route: 058
     Dates: start: 20180122, end: 20180122

REACTIONS (4)
  - Hepatic cirrhosis [Fatal]
  - Dyspnoea [Fatal]
  - Lung disorder [Fatal]
  - Cough [Fatal]

NARRATIVE: CASE EVENT DATE: 20180122
